FAERS Safety Report 19048424 (Version 1)
Quarter: 2021Q1

REPORT INFORMATION
  Report Type: Report from Study
  Country: US (occurrence: US)
  Receive Date: 20210323
  Receipt Date: 20210323
  Transmission Date: 20210420
  Serious: Yes (Hospitalization)
  Sender: FDA-Public Use
  Company Number: US-TAKEDA-US202018588

PATIENT
  Age: 15 Year
  Sex: Male

DRUGS (3)
  1. IDURSULFASE [Suspect]
     Active Substance: IDURSULFASE
     Indication: MUCOPOLYSACCHARIDOSIS
     Dosage: 24 MILLIGRAM, 1/WEEK
     Route: 042
     Dates: start: 201206
  2. IDURSULFASE [Suspect]
     Active Substance: IDURSULFASE
     Dosage: 24 MILLIGRAM, 1/WEEK
     Route: 042
     Dates: start: 20120530
  3. IDURSULFASE [Suspect]
     Active Substance: IDURSULFASE
     Dosage: 6MG/3ML, 1/WEEK
     Route: 042
     Dates: start: 20120531

REACTIONS (4)
  - Pyrexia [Unknown]
  - Ankle operation [Unknown]
  - Knee operation [Unknown]
  - Product dose omission issue [Unknown]

NARRATIVE: CASE EVENT DATE: 202101
